FAERS Safety Report 11512630 (Version 1)
Quarter: 2015Q3

REPORT INFORMATION
  Report Type: Spontaneous
  Country: US (occurrence: None)
  Receive Date: 20150915
  Receipt Date: 20150915
  Transmission Date: 20151125
  Serious: Yes (Hospitalization)
  Sender: FDA-Public Use
  Company Number: None

PATIENT
  Age: 82 Year
  Sex: Male
  Weight: 82.6 kg

DRUGS (1)
  1. PREDNISONE. [Suspect]
     Active Substance: PREDNISONE
     Indication: PEMPHIGOID
     Route: 048
     Dates: start: 20150701

REACTIONS (7)
  - Dyspnoea [None]
  - Oedema peripheral [None]
  - Exercise tolerance decreased [None]
  - Peripheral venous disease [None]
  - Weight increased [None]
  - Hypervolaemia [None]
  - Activities of daily living impaired [None]

NARRATIVE: CASE EVENT DATE: 20150831
